FAERS Safety Report 12249648 (Version 1)
Quarter: 2016Q2

REPORT INFORMATION
  Report Type: Spontaneous
  Country: US (occurrence: US)
  Receive Date: 20160408
  Receipt Date: 20160408
  Transmission Date: 20160815
  Serious: No
  Sender: FDA-Public Use
  Company Number: US-TAKEDA-2016TUS005779

PATIENT
  Sex: Female
  Weight: 36.28 kg

DRUGS (1)
  1. PREVACID [Suspect]
     Active Substance: LANSOPRAZOLE
     Indication: PRODUCT USED FOR UNKNOWN INDICATION
     Dosage: 30 MG, BID
     Route: 050
     Dates: start: 20160104

REACTIONS (2)
  - Feeding tube complication [Recovered/Resolved]
  - Wrong technique in product usage process [Not Recovered/Not Resolved]
